FAERS Safety Report 9058561 (Version 5)
Quarter: 2013Q2

REPORT INFORMATION
  Report Type: Spontaneous
  Country: CA (occurrence: CA)
  Receive Date: 20130211
  Receipt Date: 20130411
  Transmission Date: 20140414
  Serious: Yes (Hospitalization)
  Sender: FDA-Public Use
  Company Number: PHHY2012CA111857

PATIENT
  Age: 55 Year
  Sex: Male

DRUGS (1)
  1. SANDOSTATIN LAR [Suspect]
     Indication: NEUROENDOCRINE TUMOUR
     Dosage: 30 MG,EVERY 4 WEEKS
     Route: 030
     Dates: start: 20120830

REACTIONS (6)
  - Embolism [Unknown]
  - Dehydration [Unknown]
  - Nasopharyngitis [Recovering/Resolving]
  - Rhinorrhoea [Recovering/Resolving]
  - Pain [Unknown]
  - Nausea [Unknown]
